FAERS Safety Report 9412836 (Version 1)
Quarter: 2013Q3

REPORT INFORMATION
  Report Type: Spontaneous
  Country: US (occurrence: US)
  Receive Date: 20130722
  Receipt Date: 20130722
  Transmission Date: 20140515
  Serious: Yes (Other)
  Sender: FDA-Public Use
  Company Number: US-GLAXOSMITHKLINE-A1033099A

PATIENT
  Sex: Female

DRUGS (5)
  1. ARZERRA [Suspect]
     Indication: CHRONIC LYMPHOCYTIC LEUKAEMIA
     Dosage: 300MG SINGLE DOSE
     Route: 042
     Dates: start: 20130712
  2. ACYCLOVIR [Concomitant]
  3. BACTRIM [Concomitant]
  4. ZOCOR [Concomitant]
  5. PROCRIT [Concomitant]

REACTIONS (4)
  - Rash [Unknown]
  - Pruritus [Unknown]
  - Hypoaesthesia [Unknown]
  - Infusion related reaction [Unknown]
